FAERS Safety Report 18190032 (Version 1)
Quarter: 2020Q3

REPORT INFORMATION
  Report Type: Spontaneous
  Country: JP (occurrence: JP)
  Receive Date: 20200825
  Receipt Date: 20200825
  Transmission Date: 20201103
  Serious: Yes (Other)
  Sender: FDA-Public Use
  Company Number: JP-TEVA-2020-JP-005282J

PATIENT
  Sex: Male

DRUGS (3)
  1. PLAVIX [Concomitant]
     Active Substance: CLOPIDOGREL BISULFATE
     Indication: CEREBRAL INFARCTION
     Route: 065
  2. SALAZOSULFAPYRIDINE ENTERIC COATED TABLET 250MG ^TEVA^ [Suspect]
     Active Substance: SULFASALAZINE
     Indication: RHEUMATIC DISORDER
     Route: 048
  3. RIMATIL [Concomitant]
     Active Substance: BUCILLAMINE
     Indication: RHEUMATOID ARTHRITIS
     Route: 065

REACTIONS (5)
  - Decreased appetite [Unknown]
  - Visual impairment [Unknown]
  - Near death experience [Unknown]
  - Altered state of consciousness [Unknown]
  - Blood pressure increased [Unknown]
